FAERS Safety Report 7778139-2 (Version None)
Quarter: 2011Q3

REPORT INFORMATION
  Report Type: 
  Country: None (occurrence: None)
  Receive Date: 20110926
  Receipt Date: 20101004
  Transmission Date: 20111222
  Serious: Yes (Hospitalization)
  Sender: FDA-Public Use
  Company Number: US-MUTUAL PHARMACEUTICAL COMPANY, INC.-2010P1001849

PATIENT
  Sex: Male

DRUGS (1)
  1. BACTRIM [Suspect]

REACTIONS (1)
  - HYPERSENSITIVITY [None]
